FAERS Safety Report 9448389 (Version 1)
Quarter: 2013Q3

REPORT INFORMATION
  Report Type: Report from Study
  Country: JP (occurrence: JP)
  Receive Date: 20130808
  Receipt Date: 20130808
  Transmission Date: 20140515
  Serious: Yes (Hospitalization)
  Sender: FDA-Public Use
  Company Number: JP-VERTEX PHARMACEUTICALS INC-AE-2012-009035

PATIENT
  Age: 50 Year
  Sex: Female

DRUGS (10)
  1. VX-950 (TELAPREVIR) [Suspect]
     Indication: CHRONIC HEPATITIS C
     Dosage: 2250 MG, QD
     Route: 048
     Dates: start: 20120528
  2. RIBAVIRIN [Concomitant]
     Dosage: 600 MG, QD
     Route: 048
     Dates: start: 20120528, end: 20120610
  3. RIBAVIRIN [Concomitant]
     Dosage: 200 MG, QD
     Route: 048
     Dates: start: 20120611
  4. PEGINTERFERON ALFA-2B [Concomitant]
     Dosage: 80 ?G, QW
     Route: 051
     Dates: start: 20120528
  5. SELBEX [Concomitant]
     Dosage: 50 MG, QD
     Route: 048
  6. LOXONIN [Concomitant]
     Dosage: UNK1T (60MG) WHEN HAVING PYREXIA WITH PAIN
     Route: 048
     Dates: start: 2008
  7. MUCOSTA [Concomitant]
     Dosage: 1T WHEN HAVING PYREXIA
     Dates: start: 20120528
  8. MEILAX [Concomitant]
     Dosage: 1T (1MG) WHEN HAVING INSOMNIA
     Dates: start: 20120601
  9. ALLOID [Concomitant]
     Dosage: 30 ML, QD
     Route: 048
     Dates: start: 20120602
  10. OMEPRAL [Concomitant]
     Dosage: 10 MG, QD
     Route: 048
     Dates: start: 2002

REACTIONS (1)
  - Decreased appetite [Recovered/Resolved]
